FAERS Safety Report 6438575-3 (Version None)
Quarter: 2009Q4

REPORT INFORMATION
  Report Type: 
  Country: None (occurrence: None)
  Receive Date: 20091112
  Receipt Date: 20090921
  Transmission Date: 20100525
  Serious: No
  Sender: FDA-Public Use
  Company Number: US-ALLERGAN-0913194US

PATIENT
  Age: 80 Year
  Sex: Female
  Weight: 41.723 kg

DRUGS (2)
  1. COMBIGAN [Suspect]
     Indication: GLAUCOMA
     Dosage: 1 GTT, QAM
     Route: 047
     Dates: start: 20090518
  2. NEVA [Concomitant]
     Indication: OSTEOPOROSIS
     Dosage: UNK
     Route: 048

REACTIONS (2)
  - HYPOTENSION [None]
  - WEIGHT DECREASED [None]
